FAERS Safety Report 6468998-8 (Version None)
Quarter: 2009Q4

REPORT INFORMATION
  Report Type: 
  Country: None (occurrence: None)
  Receive Date: 20091203
  Receipt Date: 20091121
  Transmission Date: 20100525
  Serious: Yes (Hospitalization, Other)
  Sender: FDA-Public Use
  Company Number: PHHY2009BR51426

PATIENT
  Age: 56 Year
  Sex: Male

DRUGS (6)
  1. DIOVAN AMLO FIX [Suspect]
     Indication: HYPERTENSION
     Dosage: 320/10MG 1 TABLET DAILY
     Route: 048
  2. LIPITOR [Concomitant]
     Indication: BLOOD TRIGLYCERIDES ABNORMAL
     Dosage: 40 MG, QD
     Route: 048
  3. INSUMAN [Concomitant]
     Indication: TYPE 2 DIABETES MELLITUS
     Dosage: 10 IU DAILY
     Route: 058
  4. DIAMICRON MR [Concomitant]
     Indication: TYPE 2 DIABETES MELLITUS
     Dosage: 1 DF, QD
     Route: 048
  5. ZYLORIC [Concomitant]
     Indication: BLOOD URIC ACID ABNORMAL
     Dosage: 300 MG, QD
     Route: 048
  6. GALVUS MET [Concomitant]
     Indication: TYPE 2 DIABETES MELLITUS
     Dosage: 850/50MG, BID

REACTIONS (2)
  - CORONARY ARTERY OCCLUSION [None]
  - CORONARY REVASCULARISATION [None]
